FAERS Safety Report 19399733 (Version 1)
Quarter: 2021Q2

REPORT INFORMATION
  Report Type: Spontaneous
  Country: DE (occurrence: DE)
  Receive Date: 20210610
  Receipt Date: 20210610
  Transmission Date: 20210717
  Serious: Yes (Congenital Anomaly)
  Sender: FDA-Public Use
  Company Number: DE-MYLANLABS-2021M1033879

PATIENT
  Age: 1 Day
  Sex: Male
  Weight: 3.87 kg

DRUGS (3)
  1. MIRTAZAPINE. [Suspect]
     Active Substance: MIRTAZAPINE
     Indication: SLEEP DISORDER
     Dosage: 15 MILLIGRAM, QD
     Route: 064
     Dates: start: 20191125, end: 20200826
  2. LORANO [Concomitant]
     Active Substance: LORATADINE
     Indication: SEASONAL ALLERGY
     Dosage: UNK UNK, PRN
     Route: 064
  3. PROPESS [Concomitant]
     Active Substance: DINOPROSTONE
     Indication: LABOUR INDUCTION
     Dosage: UNK
     Route: 064
     Dates: start: 20200826, end: 20200826

REACTIONS (3)
  - Adactyly [Unknown]
  - Foetal exposure during pregnancy [Recovered/Resolved]
  - Syndactyly [Unknown]

NARRATIVE: CASE EVENT DATE: 20200826
